FAERS Safety Report 10076559 (Version 1)
Quarter: 2014Q2

REPORT INFORMATION
  Report Type: Spontaneous
  Country: US (occurrence: None)
  Receive Date: 20140411
  Receipt Date: 20140411
  Transmission Date: 20141212
  Serious: Yes (Other)
  Sender: FDA-Public Use
  Company Number: None

PATIENT
  Age: 16 Year
  Sex: Female
  Weight: 54.43 kg

DRUGS (2)
  1. ESCITALOPRAM [Suspect]
     Indication: SOCIAL PHOBIA
     Dosage: 1 PILL, ONCE DAILY, TAKEN BY MOUTH
     Route: 048
  2. ESCITALOPRAM [Suspect]
     Dosage: 1 PILL, ONCE DAILY, TAKEN BY MOUTH
     Route: 048

REACTIONS (2)
  - Mania [None]
  - Product substitution issue [None]
